FAERS Safety Report 8734510 (Version 2)
Quarter: 2012Q4

REPORT INFORMATION
  Report Type: Spontaneous
  Country: US (occurrence: None)
  Receive Date: 20120802
  Receipt Date: 20121025
  Transmission Date: 20130627
  Serious: Yes (Other)
  Sender: FDA-Public Use
  Company Number: 1207-396

PATIENT
  Age: 80 Year
  Sex: Female
  Weight: 47.63 kg

DRUGS (5)
  1. EYLEA [Suspect]
     Indication: MACULAR DEGENERATION
     Dosage: INTRAVITREAL
     Route: 031
     Dates: start: 20120605, end: 20121002
  2. SYNTHROID [Concomitant]
  3. KEPPRA [Concomitant]
  4. DILANTIN [Concomitant]
  5. VITAMINS (KAPSOVIT) [Concomitant]

REACTIONS (1)
  - Convulsion [None]
